FAERS Safety Report 17160983 (Version 2)
Quarter: 2020Q1

REPORT INFORMATION
  Report Type: Spontaneous
  Country: JP (occurrence: JP)
  Receive Date: 20191216
  Receipt Date: 20200114
  Transmission Date: 20200409
  Serious: Yes (Other)
  Sender: FDA-Public Use
  Company Number: NVSJ2019JP005296

PATIENT
  Sex: Male

DRUGS (3)
  1. SANDOSTATINA LAR IM INJECTION [Suspect]
     Active Substance: OCTREOTIDE ACETATE
     Indication: ACROMEGALY
     Dosage: 40 MG, Q4W
     Route: 030
  2. CABERGOLINE. [Concomitant]
     Active Substance: CABERGOLINE
     Indication: ACROMEGALY
     Dosage: 1 MG, QW
     Route: 065
  3. BROMOCRIPTINE [Concomitant]
     Active Substance: BROMOCRIPTINE
     Indication: ACROMEGALY
     Dosage: UNK
     Route: 065

REACTIONS (6)
  - Tumour invasion [Unknown]
  - Gallbladder cancer [Unknown]
  - Cholangitis infective [Unknown]
  - Gallbladder neoplasm [Unknown]
  - Bile duct stone [Unknown]
  - Cholelithiasis [Unknown]
